FAERS Safety Report 9200820 (Version 1)
Quarter: 2013Q1

REPORT INFORMATION
  Report Type: Spontaneous
  Country: US (occurrence: None)
  Receive Date: 20130328
  Receipt Date: 20130328
  Transmission Date: 20140127
  Serious: Yes (Other)
  Sender: FDA-Public Use
  Company Number: None

PATIENT
  Age: 58 Year
  Sex: 0
  Weight: 119.3 kg

DRUGS (1)
  1. YERVOY [Suspect]
     Indication: METASTATIC MALIGNANT MELANOMA
     Dosage: 330 EVERY 3 WEEKS IV
     Route: 042
     Dates: start: 20130306, end: 20130306

REACTIONS (2)
  - Palpitations [None]
  - Atrial flutter [None]
